FAERS Safety Report 20730452 (Version 1)
Quarter: 2022Q2

REPORT INFORMATION
  Report Type: Other
  Country: BY (occurrence: None)
  Receive Date: 20220420
  Receipt Date: 20220420
  Transmission Date: 20220721
  Serious: Yes (Other)
  Sender: FDA-Public Use
  Company Number: BY-ROCHE-3080412

PATIENT

DRUGS (1)
  1. TOCILIZUMAB [Suspect]
     Active Substance: TOCILIZUMAB
     Indication: COVID-19
     Dosage: 4-8 MG/KG BUT }800 MG
     Route: 042

REACTIONS (2)
  - Off label use [Unknown]
  - Bacterial infection [Unknown]
